FAERS Safety Report 14747332 (Version 1)
Quarter: 2018Q2

REPORT INFORMATION
  Report Type: Spontaneous
  Country: US (occurrence: US)
  Receive Date: 20180411
  Receipt Date: 20180411
  Transmission Date: 20180711
  Serious: No
  Sender: FDA-Public Use
  Company Number: US-ELI_LILLY_AND_COMPANY-US201803008758

PATIENT
  Age: 38 Year
  Sex: Male

DRUGS (1)
  1. TRULICITY [Suspect]
     Active Substance: DULAGLUTIDE
     Indication: PRODUCT USED FOR UNKNOWN INDICATION
     Dosage: 0.75 MG, UNKNOWN
     Route: 065
     Dates: start: 201708

REACTIONS (3)
  - Injection site haemorrhage [Recovered/Resolved]
  - Drug dose omission [Unknown]
  - Injection site irritation [Recovering/Resolving]

NARRATIVE: CASE EVENT DATE: 20180316
